FAERS Safety Report 5589439-9 (Version None)
Quarter: 2008Q1

REPORT INFORMATION
  Report Type: 
  Country: None (occurrence: None)
  Receive Date: 20080109
  Receipt Date: 20080109
  Transmission Date: 20080703
  Serious: Yes (Other)
  Sender: FDA-Public Use
  Company Number: None

PATIENT
  Sex: Female
  Weight: 70.3075 kg

DRUGS (2)
  1. EFFEXOR XR [Suspect]
     Indication: DEPRESSION
     Dosage: 75MG ONCE DAILY ORAL
     Route: 048
     Dates: start: 20020101, end: 20070701
  2. VENLAFAXINE HCL [Suspect]
     Indication: DEPRESSION
     Dosage: 25MG DOWN TO 6 MG TWICE DAILY ORAL
     Route: 048
     Dates: start: 20070701, end: 20071129

REACTIONS (3)
  - DRUG WITHDRAWAL SYNDROME [None]
  - PRURITUS [None]
  - URTICARIA [None]
